FAERS Safety Report 8354210-1 (Version None)
Quarter: 2012Q2

REPORT INFORMATION
  Report Type: 
  Country: None (occurrence: None)
  Receive Date: 20120511
  Receipt Date: 20120502
  Transmission Date: 20120825
  Serious: Yes (Hospitalization, Disabling, Other)
  Sender: FDA-Public Use
  Company Number: US-ASTRAZENECA-2010SE31779

PATIENT
  Age: 86 Year
  Sex: Female

DRUGS (1)
  1. TOPROL-XL [Suspect]
     Route: 048

REACTIONS (3)
  - BLINDNESS [None]
  - MALIGNANT NEOPLASM OF EYE [None]
  - DEMENTIA ALZHEIMER'S TYPE [None]
